FAERS Safety Report 9433450 (Version 2)
Quarter: 2013Q3

REPORT INFORMATION
  Report Type: Spontaneous
  Country: US (occurrence: US)
  Receive Date: 20130731
  Receipt Date: 20130823
  Transmission Date: 20140515
  Serious: Yes (Hospitalization)
  Sender: FDA-Public Use
  Company Number: US-ASTRAZENECA-2013SE55861

PATIENT
  Age: 18347 Day
  Sex: Male

DRUGS (10)
  1. BRILINTA [Suspect]
     Indication: ACUTE MYOCARDIAL INFARCTION
     Route: 048
     Dates: start: 20130722, end: 20130722
  2. BRILINTA [Suspect]
     Indication: STENT PLACEMENT
     Route: 048
     Dates: start: 20130722, end: 20130722
  3. BRILINTA [Suspect]
     Indication: ACUTE MYOCARDIAL INFARCTION
     Route: 048
  4. BRILINTA [Suspect]
     Indication: STENT PLACEMENT
     Route: 048
  5. HEPARIN [Suspect]
     Route: 065
  6. COREG [Concomitant]
  7. LIPITOR [Concomitant]
  8. XANAX [Concomitant]
  9. ASA [Concomitant]
  10. RANEXA [Concomitant]

REACTIONS (3)
  - Platelet count decreased [Unknown]
  - Acute myocardial infarction [Unknown]
  - Heparin-induced thrombocytopenia [Recovered/Resolved]
